FAERS Safety Report 10062740 (Version 1)
Quarter: 2014Q2

REPORT INFORMATION
  Report Type: Spontaneous
  Country: IT (occurrence: IT)
  Receive Date: 20140407
  Receipt Date: 20140407
  Transmission Date: 20141212
  Serious: Yes (Hospitalization)
  Sender: FDA-Public Use
  Company Number: IT-GLAXOSMITHKLINE-B0983037A

PATIENT
  Age: 86 Year
  Sex: Male

DRUGS (2)
  1. ARIXTRA [Suspect]
     Indication: ISCHAEMIC STROKE
     Route: 058
  2. PLAVIX [Suspect]
     Indication: ISCHAEMIC STROKE
     Dosage: 75MG PER DAY
     Route: 048

REACTIONS (1)
  - Haematuria [Recovered/Resolved]
